FAERS Safety Report 24216642 (Version 1)
Quarter: 2024Q3

REPORT INFORMATION
  Report Type: Spontaneous
  Country: BR (occurrence: BR)
  Receive Date: 20240816
  Receipt Date: 20240816
  Transmission Date: 20241016
  Serious: Yes (Death, Hospitalization, Other)
  Sender: Steriscience PTE
  Company Number: BR-STERISCIENCE B.V.-2024-ST-001182

PATIENT
  Age: 36 Year
  Sex: Male

DRUGS (4)
  1. MIDAZOLAM [Suspect]
     Active Substance: MIDAZOLAM
     Indication: Rabies
     Dosage: UNK
     Route: 065
  2. ASCORBIC ACID [Suspect]
     Active Substance: ASCORBIC ACID
     Indication: Rabies
     Dosage: 1 GRAM, QD
     Route: 042
  3. AMANTADINE [Suspect]
     Active Substance: AMANTADINE
     Indication: Rabies
     Dosage: 100 MILLIGRAM, BID
     Route: 048
  4. KETAMINE [Suspect]
     Active Substance: KETAMINE
     Indication: Rabies
     Dosage: UNK
     Route: 065

REACTIONS (4)
  - Drug ineffective for unapproved indication [Fatal]
  - Autonomic nervous system imbalance [Fatal]
  - Bradycardia [Fatal]
  - Disease progression [None]
